FAERS Safety Report 4554642-3 (Version None)
Quarter: 2005Q1

REPORT INFORMATION
  Report Type: 
  Country: None (occurrence: None)
  Receive Date: 20041227
  Receipt Date: 20041006
  Transmission Date: 20050727
  Serious: Yes (Other)
  Sender: FDA-Public Use
  Company Number: 2004-0007599

PATIENT
  Age: 51 Year
  Sex: Male

DRUGS (6)
  1. VIREAD [Suspect]
     Dosage: 300 MG, 1 IN 1 D, ORAL
     Route: 048
     Dates: start: 20020916, end: 20041006
  2. ABC (ABACAVIR) [Concomitant]
  3. LAMIVUDINE [Concomitant]
  4. RESCRIPTOR [Concomitant]
  5. SEPTRA DS [Concomitant]
  6. ACYCLOVIR [Concomitant]

REACTIONS (1)
  - BLOOD CREATININE INCREASED [None]
